FAERS Safety Report 8373122 (Version 3)
Quarter: 2013Q1

REPORT INFORMATION
  Report Type: Spontaneous
  Country: IT (occurrence: IT)
  Receive Date: 20120131
  Receipt Date: 20130206
  Transmission Date: 20140127
  Serious: Yes (Hospitalization, Other)
  Sender: FDA-Public Use
  Company Number: IT-BAYER-2012-009132

PATIENT
  Age: 63 Year
  Sex: Male

DRUGS (3)
  1. NEXAVAR [Suspect]
     Indication: HEPATOCELLULAR CARCINOMA
     Dosage: DAILY DOSE 800 MG
     Dates: start: 20110218, end: 20110329
  2. NEXAVAR [Suspect]
     Indication: HEPATOCELLULAR CARCINOMA
     Dosage: DAILY DOSE 800 MG
  3. SELEDIE [Concomitant]
     Dosage: DAILY DOSE 1 DF
     Route: 058
     Dates: start: 20110115, end: 20110428

REACTIONS (3)
  - Cholangitis [Recovered/Resolved with Sequelae]
  - Jaundice cholestatic [Recovered/Resolved with Sequelae]
  - Embolism [None]
